FAERS Safety Report 9403664 (Version 1)
Quarter: 2013Q3

REPORT INFORMATION
  Report Type: Spontaneous
  Country: DE (occurrence: DE)
  Receive Date: 20130717
  Receipt Date: 20130717
  Transmission Date: 20140515
  Serious: Yes (Other)
  Sender: FDA-Public Use
  Company Number: DE-ROCHE-1249245

PATIENT
  Sex: 0

DRUGS (3)
  1. SAQUINAVIR [Suspect]
     Indication: HIV INFECTION
     Route: 065
  2. LOPINAVIR [Suspect]
     Indication: HIV INFECTION
     Route: 065
  3. RITONAVIR [Suspect]
     Indication: HIV INFECTION
     Route: 065

REACTIONS (1)
  - Leukoencephalopathy [Unknown]
